FAERS Safety Report 16681394 (Version 2)
Quarter: 2019Q3

REPORT INFORMATION
  Report Type: Spontaneous
  Country: JP (occurrence: JP)
  Receive Date: 20190808
  Receipt Date: 20190917
  Transmission Date: 20191004
  Serious: Yes (Hospitalization)
  Sender: FDA-Public Use
  Company Number: JP-HORIZON-BUP-0014-2019

PATIENT
  Age: 10 Day
  Sex: Male
  Weight: 2.69 kg

DRUGS (9)
  1. L-CARTIN FF [Concomitant]
     Active Substance: LEVOCARNITINE
     Indication: ORNITHINE TRANSCARBAMOYLASE DEFICIENCY
     Dosage: 16.7MG/KG/8 HOURS
     Route: 048
     Dates: start: 20190215, end: 20190409
  2. SODIUM BENZOATE [Concomitant]
     Active Substance: SODIUM BENZOATE
     Indication: ORNITHINE TRANSCARBAMOYLASE DEFICIENCY
     Dosage: 37.5MG/KG/6 HOURS
     Route: 048
     Dates: start: 20190218, end: 20190409
  3. ARGINIE [Concomitant]
     Indication: ORNITHINE TRANSCARBAMOYLASE DEFICIENCY
     Dosage: 83.33 MG/KG/8 HOURS
     Route: 042
     Dates: start: 20190215, end: 20190403
  4. ARGINIE [Concomitant]
     Indication: ORNITHINE TRANSCARBAMOYLASE DEFICIENCY
     Dosage: 83.33MG/KG/8 HOURS
     Route: 048
     Dates: start: 20190404, end: 20190409
  5. CITRULLINE [Concomitant]
     Active Substance: CITRULLINE
     Indication: ORNITHINE TRANSCARBAMOYLASE DEFICIENCY
     Dosage: /8 HOURS
     Route: 048
     Dates: start: 20190228, end: 20190409
  6. BIOTIN [Concomitant]
     Active Substance: BIOTIN
     Indication: ORNITHINE TRANSCARBAMOYLASE DEFICIENCY
     Dosage: 0.33 MG/8 HOURS
     Route: 048
     Dates: start: 20190404, end: 20190409
  7. VITAMEDIN [Concomitant]
     Active Substance: CYANOCOBALAMIN\PYRIDOXINE HYDROCHLORIDE\THIAMINE
     Indication: ORNITHINE TRANSCARBAMOYLASE DEFICIENCY
     Dosage: 0.66MG/8 HOURS
     Route: 042
     Dates: start: 20190404, end: 20190409
  8. BUPHENYL [Suspect]
     Active Substance: SODIUM PHENYLBUTYRATE
     Indication: ORNITHINE TRANSCARBAMOYLASE DEFICIENCY
     Dosage: 50MG/KG/6 HOURS
     Route: 048
     Dates: start: 20190218, end: 20190409
  9. VITAMEDIN [Concomitant]
     Active Substance: CYANOCOBALAMIN\PYRIDOXINE HYDROCHLORIDE\THIAMINE
     Indication: ORNITHINE TRANSCARBAMOYLASE DEFICIENCY
     Dosage: 0.33MG/8 HOURS
     Route: 042
     Dates: start: 20190215, end: 20190403

REACTIONS (2)
  - Diarrhoea [Recovered/Resolved]
  - Vomiting [Recovered/Resolved]

NARRATIVE: CASE EVENT DATE: 20190220
